FAERS Safety Report 21440954 (Version 2)
Quarter: 2022Q4

REPORT INFORMATION
  Report Type: Spontaneous
  Country: JP (occurrence: JP)
  Receive Date: 20221011
  Receipt Date: 20221229
  Transmission Date: 20230113
  Serious: Yes (Death, Other)
  Sender: FDA-Public Use
  Company Number: JP-GSKJP-JP2022JPN143611AA

PATIENT

DRUGS (4)
  1. MEPOLIZUMAB [Suspect]
     Active Substance: MEPOLIZUMAB
     Indication: Eosinophilic granulomatosis with polyangiitis
     Dosage: 300 MG ONCE IN A MONTH
  2. PREDNISOLONE [Concomitant]
     Active Substance: PREDNISOLONE
     Indication: Eosinophilic granulomatosis with polyangiitis
     Dosage: UNK
     Route: 048
  3. PREDNISOLONE [Concomitant]
     Active Substance: PREDNISOLONE
     Dosage: 8 MG, 1D
     Route: 048
  4. PREDNISOLONE [Concomitant]
     Active Substance: PREDNISOLONE
     Dosage: 40 MG, 1D
     Route: 048

REACTIONS (17)
  - Cerebral infarction [Fatal]
  - Eosinophilic granulomatosis with polyangiitis [Unknown]
  - Condition aggravated [Unknown]
  - Pneumonia [Unknown]
  - Respiratory failure [Unknown]
  - Immobilisation syndrome [Unknown]
  - Muscular weakness [Unknown]
  - Seizure [Unknown]
  - General physical health deterioration [Fatal]
  - Organising pneumonia [Unknown]
  - Pneumonia aspiration [Unknown]
  - Atypical mycobacterial infection [Unknown]
  - Cerebral thrombosis [Unknown]
  - Arterial stenosis [Unknown]
  - Pulmonary artery thrombosis [Unknown]
  - Pulmonary embolism [Unknown]
  - Inappropriate schedule of product administration [Unknown]
